FAERS Safety Report 5609439-X (Version None)
Quarter: 2008Q1

REPORT INFORMATION
  Report Type: 
  Country: None (occurrence: None)
  Receive Date: 20080131
  Receipt Date: 20080116
  Transmission Date: 20080703
  Serious: Yes (Other)
  Sender: FDA-Public Use
  Company Number: CH-AMGEN-UK256288

PATIENT
  Sex: Male
  Weight: 87 kg

DRUGS (7)
  1. KINERET [Suspect]
     Indication: DRUG LEVEL
     Route: 058
     Dates: start: 20040904, end: 20041014
  2. METFORMIN HCL [Concomitant]
     Route: 048
  3. REPAGLINIDE [Concomitant]
     Route: 048
  4. ATORVASTATIN [Concomitant]
     Route: 048
  5. FOLIC ACID [Concomitant]
     Route: 048
  6. ENALAPRIL [Concomitant]
     Route: 048
  7. PHENPROCOUMON [Concomitant]
     Route: 048

REACTIONS (3)
  - ASPARTATE AMINOTRANSFERASE INCREASED [None]
  - INJECTION SITE REACTION [None]
  - UPPER RESPIRATORY TRACT INFECTION [None]
